FAERS Safety Report 11226069 (Version 2)
Quarter: 2015Q3

REPORT INFORMATION
  Report Type: Report from Study
  Country: CN (occurrence: CN)
  Receive Date: 20150629
  Receipt Date: 20150703
  Transmission Date: 20151125
  Serious: Yes (Other)
  Sender: FDA-Public Use
  Company Number: CN-BAYER-2015-362691

PATIENT

DRUGS (1)
  1. NEXAVAR [Suspect]
     Active Substance: SORAFENIB
     Indication: HEPATOCELLULAR CARCINOMA
     Dosage: 400 MG, BID
     Route: 048

REACTIONS (6)
  - Blister [None]
  - Portal vein thrombosis [None]
  - Diarrhoea [None]
  - Tumour embolism [None]
  - Lymphadenopathy [None]
  - Hepatocellular carcinoma [None]
